FAERS Safety Report 22825999 (Version 2)
Quarter: 2023Q4

REPORT INFORMATION
  Report Type: Spontaneous
  Country: US (occurrence: US)
  Receive Date: 20230816
  Receipt Date: 20231002
  Transmission Date: 20240109
  Serious: Yes (Hospitalization)
  Sender: FDA-Public Use
  Company Number: US-TOPROL ACQUISITION LLC-2019-TOP-000007

PATIENT

DRUGS (11)
  1. TOPROL XL [Suspect]
     Active Substance: METOPROLOL SUCCINATE
     Indication: Hypertension
     Dosage: 50 MG IN THE MORNING AND HALF (25 MG) IN THE EVENING
     Route: 048
  2. TOPROL XL [Suspect]
     Active Substance: METOPROLOL SUCCINATE
     Indication: Palpitations
     Dosage: 50 MG IN THE MORNING AND HALF (25 MG) IN THE EVENING
     Route: 048
     Dates: start: 20190510
  3. TOPROL XL [Suspect]
     Active Substance: METOPROLOL SUCCINATE
     Dosage: 50 MG IN THE MORNING AND ONE AT SUPPER
  4. METOPROLOL SUCCINATE [Suspect]
     Active Substance: METOPROLOL SUCCINATE
     Indication: Hypertension
     Dosage: 50 MG IN THE MORNING AND HALF (25 MG) IN THE EVENING
     Route: 048
     Dates: end: 20190510
  5. METOPROLOL SUCCINATE [Suspect]
     Active Substance: METOPROLOL SUCCINATE
     Indication: Palpitations
     Dosage: 50 MG IN THE MORNING AND HALF (25 MG) IN THE EVENING
     Route: 048
     Dates: end: 20190510
  6. METOPROLOL SUCCINATE [Suspect]
     Active Substance: METOPROLOL SUCCINATE
     Dosage: 50 MG IN THE MORNING AND ONE AT SUPPER
  7. RAMIPRIL [Concomitant]
     Active Substance: RAMIPRIL
     Indication: Product used for unknown indication
     Dosage: 20 MG, QD
     Route: 065
  8. ASPIRIN [Concomitant]
     Active Substance: ASPIRIN
     Indication: Product used for unknown indication
     Dosage: UNK
     Route: 065
  9. HYDROCHLOROTHIAZIDE [Concomitant]
     Active Substance: HYDROCHLOROTHIAZIDE
     Indication: Product used for unknown indication
     Dosage: 25 MG, QD
     Route: 065
     Dates: start: 2003
  10. SPIRONOLACTONE [Concomitant]
     Active Substance: SPIRONOLACTONE
     Indication: Product used for unknown indication
     Dosage: 50 MG, QD
     Route: 065
     Dates: start: 2018
  11. SPIRONOLACTONE [Concomitant]
     Active Substance: SPIRONOLACTONE
     Dosage: 25 MG, QD
     Route: 065

REACTIONS (9)
  - Hypertension [Recovered/Resolved]
  - Atrial fibrillation [Unknown]
  - Product substitution issue [Recovered/Resolved]
  - Inappropriate schedule of product administration [Unknown]
  - Refusal of treatment by patient [Recovered/Resolved]
  - Off label use [Recovered/Resolved]
  - Drug effective for unapproved indication [Recovered/Resolved]
  - Drug ineffective [Recovered/Resolved]
  - Product availability issue [Recovered/Resolved]

NARRATIVE: CASE EVENT DATE: 20180101
